FAERS Safety Report 9236644 (Version 2)
Quarter: 2013Q2

REPORT INFORMATION
  Report Type: Spontaneous
  Country: US (occurrence: US)
  Receive Date: 20130417
  Receipt Date: 20130507
  Transmission Date: 20140414
  Serious: Yes (Other)
  Sender: FDA-Public Use
  Company Number: US-ROCHE-1211304

PATIENT
  Age: 62 Year
  Sex: Female
  Weight: 99.43 kg

DRUGS (18)
  1. XOLAIR [Suspect]
     Indication: ASTHMA
     Route: 065
     Dates: start: 20130117
  2. PROVENTIL [Concomitant]
     Indication: DYSPNOEA
     Dosage: 2.5 MG/3 ML, 00083% NEBULIZER SOLUTION
     Route: 048
  3. VENTOLIN HFA [Concomitant]
     Indication: DYSPNOEA
     Dosage: ACT INHALER
     Route: 048
  4. EPIPEN [Concomitant]
     Indication: HYPERSENSITIVITY
     Dosage: 0.MG/0.3ML
     Route: 030
  5. VAGIFEM [Concomitant]
     Dosage: INSERT 1 TABLET INTO VAGINA  AS DIRECTED
     Route: 065
  6. ALLEGRA [Concomitant]
     Route: 048
  7. FLOVENT HFA [Concomitant]
     Route: 048
  8. FLONASE [Concomitant]
     Route: 065
  9. ADVAIR DISKUS [Concomitant]
     Dosage: 500-50 MCH/DOSE
     Route: 048
  10. CORTEF [Concomitant]
     Dosage: DOUBLE OR TRIPLE DOSE FOR 3 DAYS IF SICK
     Route: 048
  11. SOLU-CORTEF [Concomitant]
     Route: 030
  12. MOTRIN [Concomitant]
     Route: 048
  13. TORADOL [Concomitant]
     Route: 040
  14. TAPAZOLE [Concomitant]
     Dosage: ONCE DAILY, 10 MG 5 DAYS A WEEK AND 7.5 MG 2 DAYS A WEEK
     Route: 048
  15. SINGULAIR [Concomitant]
     Route: 048
  16. THERAGRAN [Concomitant]
     Dosage: WITH FOOD
     Route: 048
  17. PATADAY [Concomitant]
     Dosage: 1-2 DROPS
     Route: 047
  18. PRILOSEC [Concomitant]
     Dosage: BEFORE MEALS
     Route: 048

REACTIONS (9)
  - Flushing [Unknown]
  - Feeling hot [Unknown]
  - Balance disorder [Unknown]
  - Tremor [Unknown]
  - Tremor [Unknown]
  - Blood pressure increased [Unknown]
  - Headache [Unknown]
  - Nausea [Unknown]
  - Dizziness [Unknown]
